FAERS Safety Report 15906863 (Version 1)
Quarter: 2019Q1

REPORT INFORMATION
  Report Type: Spontaneous
  Country: US (occurrence: US)
  Receive Date: 20190204
  Receipt Date: 20190204
  Transmission Date: 20190417
  Serious: No
  Sender: FDA-Public Use
  Company Number: US-PFIZER INC-2018535207

PATIENT
  Sex: Female

DRUGS (4)
  1. DAYPRO [Suspect]
     Active Substance: OXAPROZIN
     Dosage: 1200 MG, DAILY
  2. DAYPRO [Suspect]
     Active Substance: OXAPROZIN
     Dosage: 600 MG, UNK [EVERY 2 DAYS ]
  3. DAYPRO [Suspect]
     Active Substance: OXAPROZIN
     Dosage: 1200 MG, DAILY
  4. DAYPRO [Suspect]
     Active Substance: OXAPROZIN
     Dosage: 600 MG, DAILY

REACTIONS (2)
  - Condition aggravated [Unknown]
  - Intentional product misuse [Unknown]
